FAERS Safety Report 5124709-X (Version None)
Quarter: 2006Q4

REPORT INFORMATION
  Report Type: 
  Country: None (occurrence: None)
  Receive Date: 20061011
  Receipt Date: 20060829
  Transmission Date: 20070319
  Serious: Yes (Hospitalization)
  Sender: FDA-Public Use
  Company Number: PHEH2006US11133

PATIENT
  Sex: Male

DRUGS (4)
  1. EXJADE [Suspect]
     Indication: IRON METABOLISM DISORDER
     Dates: start: 20060601, end: 20060601
  2. NEXIUM [Concomitant]
  3. MOTRIN [Concomitant]
  4. ATIVAN [Concomitant]
     Dosage: UNK, PRN

REACTIONS (2)
  - HEPATIC FAILURE [None]
  - RENAL FAILURE [None]
